FAERS Safety Report 16904927 (Version 3)
Quarter: 2020Q2

REPORT INFORMATION
  Report Type: Report from Study
  Country: US (occurrence: US)
  Receive Date: 20191010
  Receipt Date: 20200604
  Transmission Date: 20200713
  Serious: Yes (Death, Hospitalization, Other)
  Sender: FDA-Public Use
  Company Number: US-GLAXOSMITHKLINE-US2019TSO177983

PATIENT
  Sex: Female

DRUGS (2)
  1. NIRAPARIB [Suspect]
     Active Substance: NIRAPARIB
     Dosage: 200 MG, QD
     Dates: start: 20190925
  2. NIRAPARIB [Suspect]
     Active Substance: NIRAPARIB
     Indication: METASTASES TO OVARY
     Dosage: 200 MG, QD
     Dates: start: 20190911

REACTIONS (10)
  - Disease progression [Unknown]
  - Mania [Not Recovered/Not Resolved]
  - Death [Fatal]
  - Diarrhoea [Unknown]
  - Nausea [Not Recovered/Not Resolved]
  - Off label use [Unknown]
  - Constipation [Not Recovered/Not Resolved]
  - Hospitalisation [Unknown]
  - Memory impairment [Unknown]
  - Anxiety [Not Recovered/Not Resolved]
